FAERS Safety Report 24208849 (Version 10)
Quarter: 2025Q2

REPORT INFORMATION
  Report Type: Spontaneous
  Country: PT (occurrence: PT)
  Receive Date: 20240814
  Receipt Date: 20250402
  Transmission Date: 20250716
  Serious: Yes (Hospitalization, Other)
  Sender: GLENMARK
  Company Number: PT-GLENMARK PHARMACEUTICALS-2024GMK093170

PATIENT
  Age: 81 Year
  Sex: Male

DRUGS (6)
  1. MOMETASONE FUROATE [Suspect]
     Active Substance: MOMETASONE FUROATE
     Indication: Fungal infection
     Route: 061
  2. MOMETASONE FUROATE [Suspect]
     Active Substance: MOMETASONE FUROATE
     Indication: Acarodermatitis
  3. TERBINAFINE [Suspect]
     Active Substance: TERBINAFINE
     Indication: Fungal infection
     Route: 061
  4. TERBINAFINE [Suspect]
     Active Substance: TERBINAFINE
     Indication: Acarodermatitis
  5. BENZYL BENZOATE [Concomitant]
     Active Substance: BENZYL BENZOATE
     Indication: Fungal infection
     Route: 061
  6. BENZYL BENZOATE [Concomitant]
     Active Substance: BENZYL BENZOATE
     Indication: Acarodermatitis

REACTIONS (3)
  - Toxic skin eruption [Unknown]
  - Toxic epidermal necrolysis [Recovered/Resolved]
  - Off label use [Unknown]
